FAERS Safety Report 6670287-3 (Version None)
Quarter: 2010Q2

REPORT INFORMATION
  Report Type: 
  Country: None (occurrence: None)
  Receive Date: 20100405
  Receipt Date: 20100322
  Transmission Date: 20101027
  Serious: Yes (Death, Life-Threatening)
  Sender: FDA-Public Use
  Company Number: 2010BM000078

PATIENT
  Age: 17 Year
  Sex: Female
  Weight: 24 kg

DRUGS (1)
  1. NAGLAZYME [Suspect]
     Indication: MUCOPOLYSACCHARIDOSIS VI
     Dosage: 25 MG; QW; IVDRP
     Route: 041
     Dates: start: 20080118, end: 20100301

REACTIONS (2)
  - CARDIO-RESPIRATORY ARREST [None]
  - FEELING ABNORMAL [None]
